FAERS Safety Report 6983904-5 (Version None)
Quarter: 2010Q3

REPORT INFORMATION
  Report Type: 
  Country: None (occurrence: None)
  Receive Date: 20100914
  Receipt Date: 20090303
  Transmission Date: 20110219
  Serious: No
  Sender: FDA-Public Use
  Company Number: US-WYE-H08468509

PATIENT
  Age: 67 Year
  Sex: Female
  Weight: 101.7 kg

DRUGS (9)
  1. ADVIL LIQUI-GELS [Suspect]
     Indication: PAIN
     Dosage: 4 LIQUI-GELS NIGHTLY
     Route: 048
     Dates: end: 20090302
  2. ZETIA [Concomitant]
  3. ATENOLOL [Concomitant]
  4. FOLIC ACID [Concomitant]
  5. WELLBUTRIN XL [Concomitant]
  6. PRILOSEC [Concomitant]
  7. ACETYLSALICYLIC ACID [Concomitant]
  8. LOVASTATIN [Concomitant]
  9. ENALAPRIL [Concomitant]

REACTIONS (2)
  - CONDITION AGGRAVATED [None]
  - DIABETES MELLITUS [None]
